FAERS Safety Report 15626626 (Version 1)
Quarter: 2018Q4

REPORT INFORMATION
  Report Type: Spontaneous
  Country: JP (occurrence: JP)
  Receive Date: 20181116
  Receipt Date: 20181116
  Transmission Date: 20190205
  Serious: Yes (Death, Other)
  Sender: FDA-Public Use
  Company Number: JP-SA-2018SA242854

PATIENT
  Age: 66 Year
  Sex: Male
  Weight: 64.7 kg

DRUGS (23)
  1. FLUOROURACIL. [Suspect]
     Active Substance: FLUOROURACIL
     Dosage: 4200 MG, QOW
     Route: 041
     Dates: start: 20180707, end: 20180707
  2. ALOXI [Concomitant]
     Active Substance: PALONOSETRON HYDROCHLORIDE
     Indication: PRODUCT USED FOR UNKNOWN INDICATION
     Dosage: 1 PACK, 1X
     Route: 065
     Dates: start: 20180726, end: 20180726
  3. ISOTONIC SODIUM CHLORIDE SOLUTION [Concomitant]
     Active Substance: SODIUM CHLORIDE
     Indication: PRODUCT USED FOR UNKNOWN INDICATION
     Dosage: 0.9 BOTTLE, 1X
     Route: 065
     Dates: start: 20180726, end: 20180726
  4. ZALTRAP [Suspect]
     Active Substance: ZIV-AFLIBERCEPT
     Indication: COLON CANCER
     Dosage: 50 MG, 1X
     Route: 041
     Dates: start: 20180726, end: 20180726
  5. ZALTRAP [Suspect]
     Active Substance: ZIV-AFLIBERCEPT
     Indication: COLON CANCER
     Dosage: 200 MG, 1X
     Route: 041
     Dates: start: 20180726, end: 20180726
  6. IRINOTECAN [Suspect]
     Active Substance: IRINOTECAN
     Indication: COLON CANCER
     Dosage: 260 MG, QOW
     Route: 042
     Dates: start: 20180726, end: 20180726
  7. ALOXI [Concomitant]
     Active Substance: PALONOSETRON HYDROCHLORIDE
     Dosage: 1 PACK, 1X
     Route: 065
     Dates: start: 20180707, end: 20180707
  8. LACTEC [Concomitant]
     Active Substance: CALCIUM CHLORIDE ANHYDROUS\POTASSIUM CHLORIDE\SODIUM CHLORIDE\SODIUM LACTATE
     Dosage: 2 DF, QD
     Route: 041
     Dates: start: 20180803, end: 20180806
  9. DECADRON [Concomitant]
     Active Substance: DEXAMETHASONE
     Dosage: 9.9 MG, 1X
     Route: 065
     Dates: start: 20180707, end: 20180707
  10. FLUOROURACIL. [Suspect]
     Active Substance: FLUOROURACIL
     Dosage: 700 MG, QOW
     Route: 040
     Dates: start: 20180707, end: 20180707
  11. CALCIUM LEVOFOLINATE [Suspect]
     Active Substance: LEVOLEUCOVORIN CALCIUM
     Indication: COLON CANCER
     Dosage: 350 MG, QOW
     Route: 042
     Dates: start: 20180726, end: 20180726
  12. DECADRON [Concomitant]
     Active Substance: DEXAMETHASONE
     Indication: PRODUCT USED FOR UNKNOWN INDICATION
     Dosage: 9.9 MG, 1X
     Route: 065
     Dates: start: 20180726, end: 20180726
  13. LACTEC [Concomitant]
     Active Substance: CALCIUM CHLORIDE ANHYDROUS\POTASSIUM CHLORIDE\SODIUM CHLORIDE\SODIUM LACTATE
     Dosage: 1 DF, 1X
     Route: 041
     Dates: start: 20180801, end: 20180801
  14. ZALTRAP [Suspect]
     Active Substance: ZIV-AFLIBERCEPT
     Dosage: 200 MG, 1X
     Route: 041
     Dates: start: 20180707, end: 20180707
  15. SOLDEM 3A [Concomitant]
     Active Substance: CARBOHYDRATES\POTASSIUM CHLORIDE\SODIUM CHLORIDE\SODIUM LACTATE
     Indication: PRODUCT USED FOR UNKNOWN INDICATION
     Dosage: 3 DF, QD
     Route: 041
     Dates: start: 20180731, end: 20180806
  16. ZALTRAP [Suspect]
     Active Substance: ZIV-AFLIBERCEPT
     Dosage: 50 MG, 1X
     Route: 041
     Dates: start: 20180707, end: 20180707
  17. FLUOROURACIL. [Suspect]
     Active Substance: FLUOROURACIL
     Dosage: 4200 MG, QOW
     Route: 041
     Dates: start: 20180726, end: 20180726
  18. CALCIUM LEVOFOLINATE [Suspect]
     Active Substance: LEVOLEUCOVORIN CALCIUM
     Dosage: 350 MG, QOW
     Route: 042
     Dates: start: 20180707, end: 20180707
  19. IRINOTECAN [Suspect]
     Active Substance: IRINOTECAN
     Dosage: 260 MG, QOW
     Route: 042
     Dates: start: 20180707, end: 20180707
  20. CEFMETAZOLE SODIUM [Concomitant]
     Active Substance: CEFMETAZOLE SODIUM
     Indication: PRODUCT USED FOR UNKNOWN INDICATION
     Dosage: 2 DF, QD
     Route: 041
     Dates: start: 20180731, end: 20180806
  21. FLUOROURACIL. [Suspect]
     Active Substance: FLUOROURACIL
     Indication: COLON CANCER
     Dosage: 700 MG, QOW
     Route: 040
     Dates: start: 20180726, end: 20180726
  22. ISOTONIC SODIUM CHLORIDE SOLUTION [Concomitant]
     Active Substance: SODIUM CHLORIDE
     Dosage: 0.9 BOTTLE, 1X
     Route: 065
     Dates: start: 20180707, end: 20180707
  23. LACTEC [Concomitant]
     Active Substance: CALCIUM CHLORIDE ANHYDROUS\POTASSIUM CHLORIDE\SODIUM CHLORIDE\SODIUM LACTATE
     Indication: PRODUCT USED FOR UNKNOWN INDICATION
     Dosage: 2 DF, 1X
     Route: 041
     Dates: start: 20180731, end: 20180731

REACTIONS (4)
  - Gastrointestinal perforation [Fatal]
  - Vomiting [Fatal]
  - Intestinal obstruction [Fatal]
  - Abdominal pain [Fatal]

NARRATIVE: CASE EVENT DATE: 20180731
